FAERS Safety Report 19107162 (Version 1)
Quarter: 2021Q2

REPORT INFORMATION
  Report Type: Spontaneous
  Country: US (occurrence: US)
  Receive Date: 20210408
  Receipt Date: 20210408
  Transmission Date: 20210717
  Serious: Yes (Disabling, Other)
  Sender: FDA-Public Use
  Company Number: None

PATIENT
  Age: 57 Year
  Sex: Female
  Weight: 104.85 kg

DRUGS (18)
  1. TRESIBA [Concomitant]
     Active Substance: INSULIN DEGLUDEC
  2. FENOFIBRATE. [Concomitant]
     Active Substance: FENOFIBRATE
  3. METFORMIN [Concomitant]
     Active Substance: METFORMIN HYDROCHLORIDE
  4. CLONAPAMIZ [Concomitant]
  5. BUSIPIRE [Concomitant]
  6. HYDROXYZINE [Concomitant]
     Active Substance: HYDROXYZINE HYDROCHLORIDE
  7. TRELEGY ELLIPTA [Concomitant]
     Active Substance: FLUTICASONE FUROATE\UMECLIDINIUM BROMIDE\VILANTEROL TRIFENATATE
  8. KLO?CON [Concomitant]
  9. ALEVE [Concomitant]
     Active Substance: NAPROXEN SODIUM
  10. BACLOFEN. [Concomitant]
     Active Substance: BACLOFEN
  11. OLANZAPINE. [Concomitant]
     Active Substance: OLANZAPINE
  12. OZEMPIC [Concomitant]
     Active Substance: SEMAGLUTIDE
  13. SMIVASTATIN [Concomitant]
  14. CYCLOBENZPRIN [Concomitant]
  15. DULCOLAX NOS [Concomitant]
     Active Substance: BISACODYL OR DOCUSATE SODIUM
  16. VENTOLIN [Concomitant]
     Active Substance: ALBUTEROL SULFATE
  17. TRELEGY ELLIPTA [Suspect]
     Active Substance: FLUTICASONE FUROATE\UMECLIDINIUM BROMIDE\VILANTEROL TRIFENATATE
     Indication: CHRONIC OBSTRUCTIVE PULMONARY DISEASE
     Dosage: ?          OTHER STRENGTH:100 MCG/62.5 MCG/2;QUANTITY:1 INHALATION(S);?
     Route: 055
  18. GOODYS [Concomitant]
     Active Substance: ACETAMINOPHEN\ASPIRIN\CAFFEINE

REACTIONS (2)
  - Dyspnoea [None]
  - Oxygen saturation decreased [None]

NARRATIVE: CASE EVENT DATE: 20210311
